FAERS Safety Report 9660670 (Version 1)
Quarter: 2013Q4

REPORT INFORMATION
  Report Type: Spontaneous
  Country: US (occurrence: US)
  Receive Date: 20131031
  Receipt Date: 20131031
  Transmission Date: 20140711
  Serious: Yes (Other)
  Sender: FDA-Public Use
  Company Number: US-NAPPMUNDI-USA-2011-0072477

PATIENT
  Age: 19 Year
  Sex: Male

DRUGS (3)
  1. OXYCONTIN TABLETS [Suspect]
     Indication: PRODUCT USED FOR UNKNOWN INDICATION
  2. PERCOCET /00867901/ [Suspect]
     Indication: PRODUCT USED FOR UNKNOWN INDICATION
  3. VICODIN [Suspect]
     Indication: PRODUCT USED FOR UNKNOWN INDICATION

REACTIONS (3)
  - Drug dependence [Recovering/Resolving]
  - Drug abuse [Recovering/Resolving]
  - Malaise [Recovering/Resolving]
